FAERS Safety Report 12907772 (Version 2)
Quarter: 2017Q1

REPORT INFORMATION
  Report Type: Spontaneous
  Country: RU (occurrence: RU)
  Receive Date: 20161103
  Receipt Date: 20170125
  Transmission Date: 20170428
  Serious: Yes (Other)
  Sender: FDA-Public Use
  Company Number: RU-REGENERON PHARMACEUTICALS, INC.-2016-23248

PATIENT

DRUGS (1)
  1. EYLEA [Suspect]
     Active Substance: AFLIBERCEPT
     Indication: RETINAL VASCULAR THROMBOSIS
     Dosage: 2 MG/0.05 ML, IN THE RIGHT EYE
     Route: 031
     Dates: start: 20160920, end: 20160920

REACTIONS (2)
  - Optical coherence tomography abnormal [Unknown]
  - Blindness [Unknown]
